FAERS Safety Report 7334260-4 (Version None)
Quarter: 2011Q1

REPORT INFORMATION
  Report Type: 
  Country: None (occurrence: None)
  Receive Date: 20110307
  Receipt Date: 20110223
  Transmission Date: 20110831
  Serious: Yes (Other)
  Sender: FDA-Public Use
  Company Number: GB-JNJFOC-20110300846

PATIENT
  Age: 82 Year
  Sex: Male

DRUGS (2)
  1. REMINYL XL [Suspect]
     Route: 048
  2. REMINYL XL [Suspect]
     Indication: DEMENTIA
     Route: 048

REACTIONS (10)
  - CHROMATURIA [None]
  - BLOOD PRESSURE INCREASED [None]
  - WEIGHT DECREASED [None]
  - THERAPEUTIC RESPONSE UNEXPECTED [None]
  - FEELING COLD [None]
  - FATIGUE [None]
  - JAUNDICE [None]
  - DECREASED APPETITE [None]
  - MALAISE [None]
  - PYREXIA [None]
